FAERS Safety Report 7666669-3 (Version None)
Quarter: 2011Q3

REPORT INFORMATION
  Report Type: 
  Country: None (occurrence: None)
  Receive Date: 20110806
  Receipt Date: 20110701
  Transmission Date: 20111222
  Serious: No
  Sender: FDA-Public Use
  Company Number: US-ABBOTT-11P-163-0835587-00

PATIENT
  Sex: Male

DRUGS (2)
  1. FENOFIBRATE [Concomitant]
     Indication: PRODUCT USED FOR UNKNOWN INDICATION
  2. NIASPAN [Suspect]
     Indication: PRODUCT USED FOR UNKNOWN INDICATION
     Dates: start: 20110601

REACTIONS (6)
  - DYSPHONIA [None]
  - OEDEMA PERIPHERAL [None]
  - FACE OEDEMA [None]
  - LIP SWELLING [None]
  - FLUSHING [None]
  - GENERALISED ERYTHEMA [None]
